FAERS Safety Report 15028072 (Version 2)
Quarter: 2019Q1

REPORT INFORMATION
  Report Type: Spontaneous
  Country: DE (occurrence: DE)
  Receive Date: 20180619
  Receipt Date: 20190205
  Transmission Date: 20190417
  Serious: Yes (Hospitalization, Other)
  Sender: FDA-Public Use
  Company Number: DE-MYLANLABS-2018M1009563

PATIENT
  Age: 33 Year
  Sex: Male
  Weight: 112.6 kg

DRUGS (4)
  1. HUMIRA [Suspect]
     Active Substance: ADALIMUMAB
     Indication: PSORIASIS
     Dosage: 14 UNK
     Route: 058
     Dates: start: 20150527, end: 201705
  2. ADVANTAN [Concomitant]
     Active Substance: METHYLPREDNISOLONE ACEPONATE
     Indication: PRODUCT USED FOR UNKNOWN INDICATION
     Dosage: UNK
  3. CANDESARTAN. [Suspect]
     Active Substance: CANDESARTAN
     Indication: PRODUCT USED FOR UNKNOWN INDICATION
     Dosage: 8 MG, UNK
     Route: 065
     Dates: start: 20170914
  4. HUMIRA [Suspect]
     Active Substance: ADALIMUMAB
     Dosage: UNK
     Route: 058
     Dates: start: 20170607, end: 20170607

REACTIONS (19)
  - Polyuria [Unknown]
  - Arthralgia [Unknown]
  - Impaired quality of life [Unknown]
  - Stress [Unknown]
  - Weight increased [Unknown]
  - Haematuria [Unknown]
  - Glomerulonephritis [Unknown]
  - Gastrointestinal infection [Unknown]
  - Proteinuria [Recovering/Resolving]
  - Angina pectoris [Unknown]
  - Hepatic steatosis [Unknown]
  - Oropharyngeal pain [Unknown]
  - Hypertension [Unknown]
  - Nephritic syndrome [Recovering/Resolving]
  - Psoriasis [Unknown]
  - Inflammation [Unknown]
  - Hyperhidrosis [Unknown]
  - Cholelithiasis [Unknown]
  - Erythema [Unknown]

NARRATIVE: CASE EVENT DATE: 201704
